FAERS Safety Report 4642910-6 (Version None)
Quarter: 2005Q2

REPORT INFORMATION
  Report Type: 
  Country: None (occurrence: None)
  Receive Date: 20050421
  Receipt Date: 20050412
  Transmission Date: 20051028
  Serious: Yes (Death, Hospitalization)
  Sender: FDA-Public Use
  Company Number: 106159ISR

PATIENT
  Age: 78 Year
  Sex: Female

DRUGS (15)
  1. FLUOROURACIL [Suspect]
     Indication: COLON CANCER
     Dosage: 350 MILLIGRAM
     Dates: start: 20041214, end: 20050101
  2. ASASANTIN [Concomitant]
  3. NIFEDIPINE [Concomitant]
  4. VERAPAMIL [Concomitant]
  5. FOLIC ACID [Concomitant]
  6. HYDROXOCOBALAMIN HYDROCHLORIDE [Concomitant]
  7. ONDANSETRON HYDROCHLORIDE [Concomitant]
  8. DICLOFENAC SODIUM [Concomitant]
  9. PANTOPRAZOLE SODIUM [Concomitant]
  10. POTASSIUM CHLORIDE [Concomitant]
  11. METOCLOPRAMIDE HYDROCHLORIDE [Concomitant]
  12. HEPARIN-FRACTION, CALCIUM SALT [Concomitant]
  13. NEUPOGEN [Concomitant]
  14. DIPYRIDAMOLE [Concomitant]
  15. MITOMYCIN [Suspect]

REACTIONS (8)
  - DIARRHOEA [None]
  - ILEUS [None]
  - LARGE INTESTINAL ULCER [None]
  - LARGE INTESTINE PERFORATION [None]
  - LEUKOPENIA [None]
  - MUCOSAL INFLAMMATION [None]
  - NEUTROPENIC COLITIS [None]
  - RADIATION INJURY [None]
